FAERS Safety Report 5997361-9 (Version None)
Quarter: 2008Q4

REPORT INFORMATION
  Report Type: 
  Country: None (occurrence: None)
  Receive Date: 20081212
  Receipt Date: 20081202
  Transmission Date: 20090506
  Serious: Yes (Other)
  Sender: FDA-Public Use
  Company Number: DE-PFIZER INC-2008150696

PATIENT

DRUGS (2)
  1. LYRICA [Suspect]
     Route: 048
  2. COPAXONE [Suspect]

REACTIONS (1)
  - TRANSAMINASES INCREASED [None]
